FAERS Safety Report 4828283-4 (Version None)
Quarter: 2005Q4

REPORT INFORMATION
  Report Type: 
  Country: None (occurrence: None)
  Receive Date: 20051114
  Receipt Date: 20051114
  Transmission Date: 20060501
  Serious: Yes (Hospitalization)
  Sender: FDA-Public Use
  Company Number: None

PATIENT
  Age: 66 Year
  Sex: Female
  Weight: 153.2 kg

DRUGS (12)
  1. DIGOXIN [Suspect]
     Dosage: 0.125 MG PO DAILY- CHRONIC
     Route: 048
  2. AMIODARONE [Concomitant]
  3. COUMADIN [Concomitant]
  4. COREG [Concomitant]
  5. INSULIN [Concomitant]
  6. IRBESARTAN [Concomitant]
  7. MAXZIDE [Concomitant]
  8. GLUCOTROL [Concomitant]
  9. ZOCOR [Concomitant]
  10. LASIX [Concomitant]
  11. ASPIRIN [Concomitant]
  12. IMDUR [Concomitant]

REACTIONS (6)
  - CONSTIPATION [None]
  - DEHYDRATION [None]
  - DIZZINESS [None]
  - NAUSEA [None]
  - THERAPEUTIC AGENT TOXICITY [None]
  - VOMITING [None]
